FAERS Safety Report 13836404 (Version 1)
Quarter: 2017Q3

REPORT INFORMATION
  Report Type: Spontaneous
  Country: DE (occurrence: DE)
  Receive Date: 20170804
  Receipt Date: 20170804
  Transmission Date: 20171127
  Serious: Yes (Hospitalization)
  Sender: FDA-Public Use
  Company Number: DE-BAYER-2017-149009

PATIENT
  Age: 27 Year
  Sex: Male

DRUGS (2)
  1. AVALOX [Suspect]
     Active Substance: MOXIFLOXACIN HYDROCHLORIDE
     Dosage: 0.4 G, UNK
     Route: 042
  2. NORFLOXACIN [Suspect]
     Active Substance: NORFLOXACIN
     Indication: GASTROINTESTINAL INFECTION
     Dosage: 0.6 G, QD
     Route: 048

REACTIONS (1)
  - Musculoskeletal discomfort [Not Recovered/Not Resolved]

NARRATIVE: CASE EVENT DATE: 2017
